FAERS Safety Report 9687522 (Version 2)
Quarter: 2013Q4

REPORT INFORMATION
  Report Type: Spontaneous
  Country: JP (occurrence: JP)
  Receive Date: 20131114
  Receipt Date: 20131121
  Transmission Date: 20140711
  Serious: Yes (Other)
  Sender: FDA-Public Use
  Company Number: JP-ASTRAZENECA-2013SE82390

PATIENT
  Sex: 0

DRUGS (2)
  1. NEXIUM [Suspect]
     Route: 048
  2. MULTIPLE DRUGS [Concomitant]

REACTIONS (2)
  - Rhabdomyolysis [Recovering/Resolving]
  - Blood creatine phosphokinase increased [Not Recovered/Not Resolved]
